FAERS Safety Report 15072773 (Version 1)
Quarter: 2018Q2

REPORT INFORMATION
  Report Type: Spontaneous
  Country: US (occurrence: US)
  Receive Date: 20180627
  Receipt Date: 20180627
  Transmission Date: 20180711
  Serious: Yes (Hospitalization, Other)
  Sender: FDA-Public Use
  Company Number: US-009507513-1806USA010265

PATIENT
  Sex: Female

DRUGS (1)
  1. FOLLISTIM AQ [Suspect]
     Active Substance: FOLLITROPIN
     Indication: INFERTILITY FEMALE
     Dosage: 150 UNITS, QD (STRENGTH: 900 UNITS)
     Route: 058
     Dates: start: 20170407

REACTIONS (1)
  - Ovarian hyperstimulation syndrome [Unknown]
